FAERS Safety Report 18974883 (Version 4)
Quarter: 2023Q1

REPORT INFORMATION
  Report Type: Spontaneous
  Country: US (occurrence: US)
  Receive Date: 20210305
  Receipt Date: 20230324
  Transmission Date: 20230418
  Serious: Yes (Other)
  Sender: FDA-Public Use
  Company Number: US-ALLERGAN-2108417US

PATIENT
  Sex: Female

DRUGS (1)
  1. DURYSTA [Suspect]
     Active Substance: BIMATOPROST
     Indication: Intraocular pressure increased
     Dosage: 0.01 MG, SINGLE
     Route: 031
     Dates: start: 20210218, end: 20210218

REACTIONS (3)
  - Toxic anterior segment syndrome [Recovered/Resolved]
  - Non-infectious endophthalmitis [Recovered/Resolved]
  - Hypopyon [Recovered/Resolved]

NARRATIVE: CASE EVENT DATE: 20210223
